FAERS Safety Report 5452085-1 (Version None)
Quarter: 2007Q3

REPORT INFORMATION
  Report Type: 
  Country: None (occurrence: None)
  Receive Date: 20070803
  Receipt Date: 20070409
  Transmission Date: 20080115
  Serious: Yes (Other)
  Sender: FDA-Public Use
  Company Number: SPV1-2007-01984

PATIENT
  Age: 10 Year
  Sex: Male
  Weight: 38.5 kg

DRUGS (1)
  1. DAYTRANA [Suspect]
     Indication: ATTENTION DEFICIT/HYPERACTIVITY DISORDER
     Dosage: 10 MG, TRANSDERMAL
     Route: 062
     Dates: start: 20070301, end: 20070408

REACTIONS (3)
  - APPLICATION SITE BLEEDING [None]
  - APPLICATION SITE VESICLES [None]
  - URTICARIA [None]
